FAERS Safety Report 15405528 (Version 1)
Quarter: 2018Q3

REPORT INFORMATION
  Report Type: Spontaneous
  Country: AU (occurrence: AU)
  Receive Date: 20180920
  Receipt Date: 20180920
  Transmission Date: 20181010
  Serious: Yes (Other)
  Sender: FDA-Public Use
  Company Number: AU-BRISTOL-MYERS SQUIBB COMPANY-BMS-2018-044814

PATIENT
  Sex: Female

DRUGS (2)
  1. ABATACEPT [Suspect]
     Active Substance: ABATACEPT
     Indication: IMMUNE SYSTEM DISORDER
     Dosage: 750 MG, UNK
     Route: 042
  2. ABATACEPT [Suspect]
     Active Substance: ABATACEPT
     Indication: IMMUNE SYSTEM DISORDER
     Dosage: 125 MG, QWK
     Route: 058

REACTIONS (2)
  - Product use in unapproved indication [Unknown]
  - Melanoma recurrent [Unknown]
